FAERS Safety Report 7909294-9 (Version None)
Quarter: 2011Q4

REPORT INFORMATION
  Report Type: 
  Country: None (occurrence: None)
  Receive Date: 20111111
  Receipt Date: 20111101
  Transmission Date: 20120403
  Serious: Yes (Hospitalization)
  Sender: FDA-Public Use
  Company Number: US-ELI_LILLY_AND_COMPANY-US201108002182

PATIENT
  Sex: Female

DRUGS (2)
  1. GLUCOPHAGE [Concomitant]
     Dosage: UNK, UNKNOWN
     Route: 065
  2. HUMATROPE [Suspect]
     Indication: HYPOPITUITARISM
     Dosage: 0.4 MG, QD
     Dates: start: 20040101

REACTIONS (7)
  - GASTROENTERITIS VIRAL [None]
  - NASOPHARYNGITIS [None]
  - CONSTIPATION [None]
  - DIZZINESS [None]
  - ASTHENIA [None]
  - MALAISE [None]
  - ELECTROCARDIOGRAM ABNORMAL [None]
